FAERS Safety Report 7557244-X (Version None)
Quarter: 2011Q2

REPORT INFORMATION
  Report Type: 
  Country: None (occurrence: None)
  Receive Date: 20110620
  Receipt Date: 20110606
  Transmission Date: 20111010
  Serious: Yes (Hospitalization)
  Sender: FDA-Public Use
  Company Number: US-JNJFOC-20110604264

PATIENT
  Sex: Female
  Weight: 50.5 kg

DRUGS (4)
  1. INFLIXIMAB, RECOMBINANT [Suspect]
     Indication: CROHN'S DISEASE
     Route: 042
     Dates: start: 20110324
  2. INFLIXIMAB, RECOMBINANT [Suspect]
     Route: 042
     Dates: start: 20110503
  3. MESALAMINE [Concomitant]
     Route: 048
  4. AZATHIOPRINE [Concomitant]
     Dates: start: 20101022

REACTIONS (1)
  - SMALL INTESTINAL OBSTRUCTION [None]
